FAERS Safety Report 10167482 (Version 3)
Quarter: 2014Q2

REPORT INFORMATION
  Report Type: Report from Study
  Country: NL (occurrence: NL)
  Receive Date: 20140512
  Receipt Date: 20140528
  Transmission Date: 20141212
  Serious: Yes (Death)
  Sender: FDA-Public Use
  Company Number: PHHY2014NL038132

PATIENT
  Sex: Female

DRUGS (3)
  1. SANDOSTATIN LAR [Suspect]
     Indication: PANCREATIC NEUROENDOCRINE TUMOUR
     Dosage: 30 MG/2ML PER 3 WEEKS
     Route: 030
  2. SANDOSTATIN LAR [Suspect]
     Dosage: 30 MG/2ML PER 3 WEEKS
     Route: 030
     Dates: start: 20140129
  3. SANDOSTATIN LAR [Suspect]
     Dosage: 30 MG/2ML PER 3 WEEKS
     Route: 030
     Dates: start: 20140312

REACTIONS (2)
  - Cerebrovascular accident [Fatal]
  - Cardiac valve disease [Fatal]
